FAERS Safety Report 10217412 (Version 1)
Quarter: 2014Q2

REPORT INFORMATION
  Report Type: Report from Study
  Country: UY (occurrence: AR)
  Receive Date: 20140604
  Receipt Date: 20140604
  Transmission Date: 20141212
  Serious: Yes (Other)
  Sender: FDA-Public Use
  Company Number: UY-ABBVIE-14P-168-1242120-00

PATIENT
  Sex: Female

DRUGS (2)
  1. HUMIRA [Suspect]
     Indication: RHEUMATOID ARTHRITIS
     Route: 058
     Dates: start: 20121201, end: 201311
  2. HUMIRA [Suspect]
     Dates: start: 20140115

REACTIONS (1)
  - Intestinal mass [Recovered/Resolved]
